FAERS Safety Report 8029283-6 (Version None)
Quarter: 2012Q1

REPORT INFORMATION
  Report Type: 
  Country: None (occurrence: None)
  Receive Date: 20120106
  Receipt Date: 20120106
  Transmission Date: 20120608
  Serious: Yes (Life-Threatening, Other)
  Sender: FDA-Public Use
  Company Number: CA-PFIZER INC-2010048402

PATIENT
  Age: 45 Year
  Sex: Female

DRUGS (9)
  1. TRAZODONE [Concomitant]
     Indication: INSOMNIA
     Dosage: 20 MG, 1X/DAY AT BEDTIME
  2. LYRICA [Suspect]
     Dosage: 50 MG, 1X/DAY
     Route: 048
     Dates: start: 20100201, end: 20100301
  3. NEXIUM [Concomitant]
     Indication: GASTROOESOPHAGEAL REFLUX DISEASE
     Dosage: 40 MG, 1X/DAY
  4. DIANE [Concomitant]
     Indication: CONTRACEPTION
     Dosage: UNK
  5. CYMBALTA [Concomitant]
     Indication: DEPRESSION
  6. CYMBALTA [Concomitant]
     Indication: FIBROMYALGIA
     Dosage: 60 MG, 1X/DAY
  7. LYRICA [Suspect]
     Indication: FIBROMYALGIA
     Dosage: 25 MG, 1X/DAY
     Route: 048
     Dates: start: 20100210, end: 20100201
  8. FLEXERIL [Concomitant]
     Indication: FIBROMYALGIA
     Dosage: 10 MG, 1X/DAY AS NEEDED
  9. MAXERAN [Concomitant]
     Dosage: UNK

REACTIONS (3)
  - SUICIDAL IDEATION [None]
  - DEPRESSION [None]
  - WEIGHT DECREASED [None]
